FAERS Safety Report 10548057 (Version 1)
Quarter: 2014Q4

REPORT INFORMATION
  Report Type: Spontaneous
  Country: US (occurrence: None)
  Receive Date: 20141027
  Receipt Date: 20141027
  Transmission Date: 20150529
  Serious: No
  Sender: FDA-Public Use
  Company Number: None

PATIENT
  Age: 58 Year
  Sex: Female

DRUGS (1)
  1. HUMIRA [Suspect]
     Active Substance: ADALIMUMAB
     Indication: RHEUMATOID ARTHRITIS
     Dosage: 40MG  EVERY 2 WEEKS  SQ
     Route: 058
     Dates: start: 20140628

REACTIONS (4)
  - Nasal congestion [None]
  - Dyspnoea [None]
  - Nasal ulcer [None]
  - Epistaxis [None]

NARRATIVE: CASE EVENT DATE: 20140719
